FAERS Safety Report 25006263 (Version 1)
Quarter: 2025Q1

REPORT INFORMATION
  Report Type: Spontaneous
  Country: US (occurrence: US)
  Receive Date: 20250224
  Receipt Date: 20250224
  Transmission Date: 20250409
  Serious: No
  Sender: ELI LILLY AND COMPANY
  Company Number: US-ELI_LILLY_AND_COMPANY-US202502014438

PATIENT
  Age: 20 Year
  Sex: Female

DRUGS (3)
  1. PROZAC [Interacting]
     Active Substance: FLUOXETINE HYDROCHLORIDE
     Indication: Product used for unknown indication
     Route: 065
  2. LUMRYZ [Interacting]
     Active Substance: SODIUM OXYBATE
     Indication: Narcolepsy
     Dosage: 6 G, EACH EVENING
     Route: 048
     Dates: start: 202501, end: 202501
  3. LUMRYZ [Interacting]
     Active Substance: SODIUM OXYBATE
     Indication: Cataplexy
     Dosage: 7.5 G, EACH EVENING
     Route: 048
     Dates: start: 202501

REACTIONS (3)
  - Drug interaction [Unknown]
  - Anxiety [Unknown]
  - Nausea [Unknown]
